FAERS Safety Report 6542249-8 (Version None)
Quarter: 2010Q1

REPORT INFORMATION
  Report Type: 
  Country: None (occurrence: None)
  Receive Date: 20100119
  Receipt Date: 20100114
  Transmission Date: 20100710
  Serious: Yes (Hospitalization)
  Sender: FDA-Public Use
  Company Number: D0065451A

PATIENT
  Sex: Male
  Weight: 78 kg

DRUGS (5)
  1. TRIZIVIR [Suspect]
     Indication: HIV INFECTION
     Route: 048
     Dates: start: 20030326
  2. PRAVASTATIN [Concomitant]
     Dosage: 40MG PER DAY
     Route: 048
  3. RISPERDAL [Concomitant]
     Dosage: .5MG TWICE PER DAY
     Route: 048
  4. ANAFRANIL [Concomitant]
     Dosage: 125MG PER DAY
     Route: 048
  5. BAMBOO [Concomitant]
     Dosage: 11MG THREE TIMES PER DAY
     Route: 048

REACTIONS (9)
  - CARDIOVASCULAR DISORDER [None]
  - GAIT DISTURBANCE [None]
  - HEADACHE [None]
  - HYPOAESTHESIA [None]
  - LEUKOCYTOSIS [None]
  - LEUKOENCEPHALOPATHY [None]
  - PRESBYACUSIS [None]
  - SPEECH DISORDER [None]
  - VERTIGO [None]
